FAERS Safety Report 16371558 (Version 1)
Quarter: 2019Q2

REPORT INFORMATION
  Report Type: Spontaneous
  Country: US (occurrence: US)
  Receive Date: 20190530
  Receipt Date: 20190530
  Transmission Date: 20190711
  Serious: No
  Sender: FDA-Public Use
  Company Number: US-PFIZER INC-2019225785

PATIENT
  Age: 73 Year
  Sex: Female
  Weight: 61.69 kg

DRUGS (3)
  1. LYRICA [Suspect]
     Active Substance: PREGABALIN
     Dosage: 50 MG, (EVERY 2-3 DAYS)
  2. LYRICA [Suspect]
     Active Substance: PREGABALIN
     Dosage: 50 MG, ALTERNATE DAY
  3. LYRICA [Suspect]
     Active Substance: PREGABALIN
     Indication: TRIGEMINAL NEURALGIA
     Dosage: 50 MG, 1X/DAY
     Route: 048
     Dates: start: 201809

REACTIONS (2)
  - Pain of skin [Unknown]
  - Hypoaesthesia [Unknown]
